FAERS Safety Report 7129939-3 (Version None)
Quarter: 2010Q4

REPORT INFORMATION
  Report Type: 
  Country: None (occurrence: None)
  Receive Date: 20101130
  Receipt Date: 20100804
  Transmission Date: 20110411
  Serious: No
  Sender: FDA-Public Use
  Company Number: US-AMGEN-KDL429983

PATIENT

DRUGS (4)
  1. EPOGEN [Suspect]
     Indication: ANAEMIA OF MALIGNANT DISEASE
     Dosage: UNK UNK, UNK
  2. EPOGEN [Suspect]
     Indication: DIALYSIS
  3. ARANESP [Suspect]
     Indication: ANAEMIA OF MALIGNANT DISEASE
     Dosage: UNK UNK, UNK
  4. ARANESP [Suspect]
     Indication: DIALYSIS

REACTIONS (1)
  - ANAEMIA [None]
